FAERS Safety Report 4902478-3 (Version None)
Quarter: 2006Q1

REPORT INFORMATION
  Report Type: 
  Country: None (occurrence: None)
  Receive Date: 20060202
  Receipt Date: 20060131
  Transmission Date: 20060701
  Serious: Yes (Hospitalization)
  Sender: FDA-Public Use
  Company Number: LTI2005A00323

PATIENT
  Age: 65 Year
  Sex: Male

DRUGS (7)
  1. LANSOPRAZOLE [Suspect]
     Indication: GASTRIC ULCER
     Dosage: 30 MG (30MG, 1 IN 1 D); ORAL
     Route: 048
     Dates: start: 20050827, end: 20051121
  2. MONOTILDIEM (DILTIAZEM HYDROCHLORIDE) (TABLETS) [Suspect]
     Indication: HYPERTENSION
     Dosage: 200 MG (200 MG, 1 IN 1 D); ORAL
     Route: 048
     Dates: end: 20051121
  3. TARET (VALSARTAN) (TABLETS) [Suspect]
     Indication: HYPERTENSION
     Dosage: 80 MG (80 MG, 1 IN 1 D) ORAL
     Route: 048
     Dates: end: 20051121
  4. ALDACTON (SPIRONOLACTONE) (TABLETS) [Concomitant]
  5. OFLOCET (OFLOXACIN) (200 MILLIGRAM, TABLETS) [Concomitant]
  6. REVIA (NALTREXONE HYDROCHLORIDE) (TABLETS) [Concomitant]
  7. LEVOTHYROX (LEVOTHYROXINE SODIUM) (TABLETS) [Concomitant]

REACTIONS (4)
  - CUTANEOUS VASCULITIS [None]
  - HYPERKERATOSIS [None]
  - LEUKOCYTOCLASTIC VASCULITIS [None]
  - LOCALISED INFECTION [None]
